FAERS Safety Report 10645271 (Version 1)
Quarter: 2014Q4

REPORT INFORMATION
  Report Type: Spontaneous
  Country: DE (occurrence: DE)
  Receive Date: 20141211
  Receipt Date: 20141211
  Transmission Date: 20150529
  Serious: Yes (Hospitalization, Congenital Anomaly)
  Sender: FDA-Public Use
  Company Number: DE-UCBSA-2014020833

PATIENT
  Age: 0 Year
  Sex: Female
  Weight: 2.81 kg

DRUGS (2)
  1. KEPPRA [Suspect]
     Active Substance: LEVETIRACETAM
     Indication: EPILEPSY
     Dosage: 500 MG, 4X/DAY (QID)
     Route: 064
     Dates: start: 20130914, end: 20140527
  2. VALPROIC ACID. [Suspect]
     Active Substance: VALPROIC ACID
     Indication: EPILEPSY
     Dosage: 300 MG, ONCE DAILY (QD)
     Route: 064
     Dates: start: 20130914, end: 20140527

REACTIONS (9)
  - Foot deformity [Unknown]
  - Foetal exposure during pregnancy [Unknown]
  - Muscular weakness [Unknown]
  - Spina bifida [Not Recovered/Not Resolved]
  - Neurogenic bladder [Not Recovered/Not Resolved]
  - Dysmorphism [Not Recovered/Not Resolved]
  - Cerebellar hypoplasia [Not Recovered/Not Resolved]
  - Ventricular septal defect [Unknown]
  - Atrial septal defect [Unknown]

NARRATIVE: CASE EVENT DATE: 20130914
